FAERS Safety Report 9009634 (Version 3)
Quarter: 2015Q1

REPORT INFORMATION
  Report Type: Spontaneous
  Country: JP (occurrence: JP)
  Receive Date: 20130110
  Receipt Date: 20150324
  Transmission Date: 20150721
  Serious: Yes (Life-Threatening, Hospitalization, Other)
  Sender: FDA-Public Use
  Company Number: JP-PFIZER INC-2012238331

PATIENT
  Age: 66 Year
  Sex: Male

DRUGS (1)
  1. SUTENT [Suspect]
     Active Substance: SUNITINIB MALATE
     Indication: RENAL CELL CARCINOMA
     Dosage: 50 MG, 1X/DAY
     Route: 048
     Dates: start: 20120316, end: 20120918

REACTIONS (7)
  - Hepatic congestion [Unknown]
  - Renal cell carcinoma [Not Recovered/Not Resolved]
  - Anaemia [Unknown]
  - Disseminated intravascular coagulation [Recovering/Resolving]
  - Disease progression [Not Recovered/Not Resolved]
  - Tumour lysis syndrome [Recovered/Resolved]
  - Cardiac failure [Unknown]

NARRATIVE: CASE EVENT DATE: 20120919
